FAERS Safety Report 18021841 (Version 2)
Quarter: 2020Q3

REPORT INFORMATION
  Report Type: Report from Study
  Country: FR (occurrence: FR)
  Receive Date: 20200715
  Receipt Date: 20200905
  Transmission Date: 20201103
  Serious: Yes (Death, Hospitalization)
  Sender: FDA-Public Use
  Company Number: FR-CELLTRION INC.-2020FR024290

PATIENT

DRUGS (1)
  1. TRUXIMA [Suspect]
     Active Substance: RITUXIMAB-ABBS
     Indication: DIFFUSE LARGE B-CELL LYMPHOMA
     Dosage: 640 MG
     Route: 042
     Dates: start: 20180222, end: 20181210

REACTIONS (8)
  - Somnolence [Fatal]
  - Hypoglycaemia [Fatal]
  - Dysphagia [Fatal]
  - General physical health deterioration [Fatal]
  - Cerebrovascular accident [Fatal]
  - Aphasia [Fatal]
  - Hemiparesis [Fatal]
  - Tachycardia [Fatal]

NARRATIVE: CASE EVENT DATE: 20190301
